FAERS Safety Report 4707080-4 (Version None)
Quarter: 2005Q2

REPORT INFORMATION
  Report Type: 
  Country: None (occurrence: None)
  Receive Date: 20050113
  Receipt Date: 20050113
  Transmission Date: 20051028
  Serious: Yes (Other)
  Sender: FDA-Public Use
  Company Number: None

PATIENT
  Age: 13 Year
  Sex: Female

DRUGS (2)
  1. KLONOPIN [Suspect]
     Indication: EPILEPSY
     Dosage: 0.5 MG PO 3 TID
     Route: 048
  2. KLONOPIN [Suspect]
     Indication: GRAND MAL CONVULSION
     Dosage: 0.5 MG PO 3 TID
     Route: 048

REACTIONS (2)
  - CONVULSION [None]
  - PHARMACEUTICAL PRODUCT COMPLAINT [None]
